FAERS Safety Report 18548504 (Version 1)
Quarter: 2020Q4

REPORT INFORMATION
  Report Type: Spontaneous
  Country: US (occurrence: US)
  Receive Date: 20201125
  Receipt Date: 20201125
  Transmission Date: 20210114
  Serious: Yes (Other)
  Sender: FDA-Public Use
  Company Number: US-MILLICENT HOLDINGS LTD.-MILL20200862

PATIENT
  Age: 67 Year
  Sex: Female

DRUGS (1)
  1. INTRAROSA [Suspect]
     Active Substance: PRASTERONE
     Indication: DYSPAREUNIA
     Route: 067
     Dates: end: 202007

REACTIONS (1)
  - Vaginal dysplasia [Recovered/Resolved]
